FAERS Safety Report 17680481 (Version 1)
Quarter: 2020Q2

REPORT INFORMATION
  Report Type: Spontaneous
  Country: FR (occurrence: FR)
  Receive Date: 20200417
  Receipt Date: 20200417
  Transmission Date: 20200714
  Serious: Yes (Hospitalization)
  Sender: FDA-Public Use
  Company Number: FR-MYLANLABS-2020M1039084

PATIENT
  Age: 78 Year
  Sex: Male
  Weight: 75 kg

DRUGS (6)
  1. ELIQUIS [Concomitant]
     Active Substance: APIXABAN
     Dosage: UNK
     Route: 048
  2. PARACETAMOL [Concomitant]
     Active Substance: ACETAMINOPHEN
     Dosage: UNK
     Route: 048
  3. DARZALEX [Suspect]
     Active Substance: DARATUMUMAB
     Indication: PAIN
     Route: 042
     Dates: start: 20191106, end: 20191128
  4. PANTOPRAZOLE [Concomitant]
     Active Substance: PANTOPRAZOLE
     Dosage: 20 MILLIGRAM
     Route: 048
  5. DEXAMETHASONE. [Suspect]
     Active Substance: DEXAMETHASONE
     Indication: PLASMA CELL MYELOMA
     Route: 042
     Dates: start: 20191106, end: 20191128
  6. REVLIMID [Suspect]
     Active Substance: LENALIDOMIDE
     Indication: PLASMA CELL MYELOMA
     Dosage: 1 DOSAGE FORM, QD
     Route: 048
     Dates: start: 20191106, end: 20191128

REACTIONS (1)
  - Partial seizures [Recovered/Resolved]

NARRATIVE: CASE EVENT DATE: 20191128
